FAERS Safety Report 11800483 (Version 1)
Quarter: 2015Q4

REPORT INFORMATION
  Report Type: Spontaneous
  Country: FR (occurrence: FR)
  Receive Date: 20151203
  Receipt Date: 20151203
  Transmission Date: 20160305
  Serious: Yes (Hospitalization)
  Sender: FDA-Public Use
  Company Number: FR-ROCHE-1671660

PATIENT
  Age: 90 Year
  Sex: Female

DRUGS (9)
  1. RIVOTRIL [Suspect]
     Active Substance: CLONAZEPAM
     Indication: PRODUCT USED FOR UNKNOWN INDICATION
     Dosage: 3 DROPS IN THE MORNING AND 5 DROP IN THE EVENING
     Route: 048
     Dates: end: 20090810
  2. INEXIUM [Concomitant]
     Active Substance: ESOMEPRAZOLE
  3. KARDEGIC [Concomitant]
     Active Substance: ASPIRIN LYSINE
  4. LASILIX [Concomitant]
     Active Substance: FUROSEMIDE
  5. ARICEPT [Concomitant]
     Active Substance: DONEPEZIL HYDROCHLORIDE
  6. DIFFU K [Concomitant]
     Active Substance: POTASSIUM CHLORIDE
  7. HEMIGOXINE [Concomitant]
     Active Substance: DIGOXIN
  8. EBIXA [Concomitant]
     Active Substance: MEMANTINE HYDROCHLORIDE
  9. DISCOTRINE [Concomitant]
     Active Substance: NITROGLYCERIN

REACTIONS (2)
  - Somnolence [Recovered/Resolved]
  - Respiratory failure [Recovered/Resolved]

NARRATIVE: CASE EVENT DATE: 20090810
